FAERS Safety Report 7673817-8 (Version None)
Quarter: 2011Q3

REPORT INFORMATION
  Report Type: 
  Country: None (occurrence: None)
  Receive Date: 20110810
  Receipt Date: 20110802
  Transmission Date: 20111222
  Serious: Yes (Life-Threatening)
  Sender: FDA-Public Use
  Company Number: IT-JNJFOC-20110706813

PATIENT
  Sex: Female

DRUGS (1)
  1. DOXORUBICIN HYDROCHLORIDE [Suspect]
     Indication: OVARIAN CANCER
     Dosage: 2 MG/ML CONCENTRATE FOR SOLUTION FOR INFUSION, INTRAVENOUS, 60 MG TOTAL
     Route: 042
     Dates: start: 20110719, end: 20110719

REACTIONS (2)
  - HYPERHIDROSIS [None]
  - ERYTHEMA [None]
